FAERS Safety Report 6706282-5 (Version None)
Quarter: 2010Q2

REPORT INFORMATION
  Report Type: 
  Country: None (occurrence: None)
  Receive Date: 20100503
  Receipt Date: 20100423
  Transmission Date: 20101027
  Serious: Yes (Death)
  Sender: FDA-Public Use
  Company Number: JP-PFIZER INC-2010053702

PATIENT
  Age: 69 Year
  Sex: Female

DRUGS (4)
  1. ADRIACIN [Suspect]
     Indication: LYMPHOMA
     Dosage: INJECTION
  2. ONCOVIN [Concomitant]
     Dosage: INJECTION
  3. ENDOXAN [Concomitant]
     Dosage: INJECTION
  4. PREDONINE [Concomitant]
     Dosage: INJECTION

REACTIONS (1)
  - CARDIAC FAILURE ACUTE [None]
